FAERS Safety Report 13914102 (Version 1)
Quarter: 2017Q3

REPORT INFORMATION
  Report Type: Spontaneous
  Country: US (occurrence: US)
  Receive Date: 20170828
  Receipt Date: 20170828
  Transmission Date: 20171127
  Serious: No
  Sender: FDA-Public Use
  Company Number: US-ROCHE-1131843

PATIENT
  Age: 10 Year
  Sex: Male

DRUGS (2)
  1. NUTROPIN [Suspect]
     Active Substance: SOMATROPIN
     Indication: HYPOPITUITARISM
     Route: 065
  2. CORTISOL REPLACEMENT [Concomitant]

REACTIONS (2)
  - Nocturia [Unknown]
  - Enuresis [Unknown]

NARRATIVE: CASE EVENT DATE: 19891002
